FAERS Safety Report 16797478 (Version 1)
Quarter: 2019Q3

REPORT INFORMATION
  Report Type: Spontaneous
  Country: US (occurrence: US)
  Receive Date: 20190912
  Receipt Date: 20190912
  Transmission Date: 20191005
  Serious: Yes (Death, Hospitalization, Other)
  Sender: FDA-Public Use
  Company Number: US-CIPLA LTD.-2019US06249

PATIENT

DRUGS (3)
  1. ALCOHOL. [Suspect]
     Active Substance: ALCOHOL
     Dosage: UNK
     Route: 048
  2. FLECAINIDE [Suspect]
     Active Substance: FLECAINIDE
     Dosage: 30 DOSAGE FORM (TABLETS), UNK
     Route: 048
  3. METOPROLOL. [Suspect]
     Active Substance: METOPROLOL
     Dosage: UNK, UNKNOWN AMOUNT
     Route: 048

REACTIONS (7)
  - Hypotension [Unknown]
  - Overdose [Fatal]
  - Ventricular fibrillation [Unknown]
  - Pulseless electrical activity [Unknown]
  - Completed suicide [Fatal]
  - Cardiac arrest [Unknown]
  - Shock [Unknown]
